FAERS Safety Report 19017359 (Version 1)
Quarter: 2021Q1

REPORT INFORMATION
  Report Type: Spontaneous
  Country: GB (occurrence: GB)
  Receive Date: 20210317
  Receipt Date: 20210317
  Transmission Date: 20210420
  Serious: Yes (Life-Threatening, Hospitalization, Other)
  Sender: FDA-Public Use
  Company Number: GB-LUPIN PHARMACEUTICALS INC.-2021-03124

PATIENT
  Age: 21 Year
  Sex: Male

DRUGS (5)
  1. COCAINE [Suspect]
     Active Substance: COCAINE
     Indication: PRODUCT USED FOR UNKNOWN INDICATION
     Dosage: UNK
     Route: 045
  2. NOOPEPT [Suspect]
     Active Substance: OMBERACETAM
     Indication: PRODUCT USED FOR UNKNOWN INDICATION
     Dosage: UNK
     Route: 045
  3. DIAZEPAM. [Suspect]
     Active Substance: DIAZEPAM
     Indication: PRODUCT USED FOR UNKNOWN INDICATION
     Dosage: UNK, ABUSE
     Route: 065
  4. RISPERIDONE. [Suspect]
     Active Substance: RISPERIDONE
     Indication: PRODUCT USED FOR UNKNOWN INDICATION
     Dosage: EXCESS AMOUNTS, ABUSE
     Route: 065
  5. DULOXETINE. [Suspect]
     Active Substance: DULOXETINE
     Indication: PRODUCT USED FOR UNKNOWN INDICATION
     Dosage: UNK, EXCESS AMOUNTS, ABUSE
     Route: 065

REACTIONS (14)
  - Extrasystoles [Unknown]
  - Ventricular extrasystoles [Unknown]
  - Facial spasm [Recovered/Resolved]
  - Somnolence [Unknown]
  - Toxicity to various agents [Unknown]
  - Coma scale abnormal [Unknown]
  - Sinus tachycardia [Unknown]
  - Muscle twitching [Recovered/Resolved]
  - Hypotension [Unknown]
  - Substance use [Unknown]
  - Palpitations [Unknown]
  - Dystonia [Recovered/Resolved]
  - Drug abuse [Unknown]
  - Overdose [Unknown]
